FAERS Safety Report 5542344-6 (Version None)
Quarter: 2007Q4

REPORT INFORMATION
  Report Type: 
  Country: None (occurrence: None)
  Receive Date: 20071210
  Receipt Date: 20070102
  Transmission Date: 20080405
  Serious: No
  Sender: FDA-Public Use
  Company Number: US-AMGEN-KDL205501

PATIENT
  Sex: Female

DRUGS (1)
  1. ENBREL [Suspect]
     Indication: RHEUMATOID ARTHRITIS
     Route: 058
     Dates: start: 20061207

REACTIONS (7)
  - ANOREXIA [None]
  - ASTHENIA [None]
  - DEPRESSION [None]
  - DIALYSIS [None]
  - DRUG DEPENDENCE [None]
  - EYE IRRITATION [None]
  - FEELING ABNORMAL [None]
